FAERS Safety Report 7593258-1 (Version None)
Quarter: 2011Q3

REPORT INFORMATION
  Report Type: 
  Country: None (occurrence: None)
  Receive Date: 20110706
  Receipt Date: 20110702
  Transmission Date: 20111222
  Serious: Yes (Hospitalization)
  Sender: FDA-Public Use
  Company Number: US-PFIZER INC-2011148563

PATIENT
  Sex: Male

DRUGS (3)
  1. CISPLATIN [Suspect]
     Indication: BLADDER TRANSITIONAL CELL CARCINOMA
     Dosage: UNK
     Dates: start: 20100518, end: 20100714
  2. GEMCITABINE [Suspect]
     Indication: BLADDER TRANSITIONAL CELL CARCINOMA
     Dosage: UNK
     Dates: start: 20100518, end: 20100714
  3. SUNITINIB MALATE [Suspect]
     Indication: BLADDER TRANSITIONAL CELL CARCINOMA
     Dosage: UNK
     Dates: start: 20100518, end: 20100714

REACTIONS (4)
  - PYREXIA [None]
  - HYPOTENSION [None]
  - THROMBOCYTOPENIA [None]
  - HYPERHIDROSIS [None]
